FAERS Safety Report 19874655 (Version 2)
Quarter: 2021Q3

REPORT INFORMATION
  Report Type: Report from Study
  Country: DE (occurrence: DE)
  Receive Date: 20210922
  Receipt Date: 20210927
  Transmission Date: 20211014
  Serious: Yes (Other)
  Sender: FDA-Public Use
  Company Number: DE-REGENERON PHARMACEUTICALS, INC.-2021-87420

PATIENT

DRUGS (1)
  1. CEMIPLIMAB [Suspect]
     Active Substance: CEMIPLIMAB
     Indication: SQUAMOUS CELL CARCINOMA OF SKIN
     Dosage: 350 MG, Q3W
     Route: 041
     Dates: start: 20210816, end: 20210816

REACTIONS (1)
  - Tumour lysis syndrome [Unknown]

NARRATIVE: CASE EVENT DATE: 20210913
